FAERS Safety Report 4602344-7 (Version None)
Quarter: 2005Q2

REPORT INFORMATION
  Report Type: 
  Country: None (occurrence: None)
  Receive Date: 20050223
  Receipt Date: 20041129
  Transmission Date: 20051028
  Serious: Yes (Hospitalization)
  Sender: FDA-Public Use
  Company Number: 210723

PATIENT
  Age: 37 Year
  Sex: Female
  Weight: 79.4 kg

DRUGS (3)
  1. RAPTIVA [Suspect]
     Indication: PSORIASIS
     Dosage: 0.5 ML, 1/WEEK, SUBCUTANEOUS; 0.8ML,1 WEEK, SUBCUTANIOUS
     Route: 058
     Dates: start: 20040930, end: 20040930
  2. RAPTIVA [Suspect]
     Indication: PSORIASIS
     Dosage: 0.5 ML, 1/WEEK, SUBCUTANEOUS; 0.8ML,1 WEEK, SUBCUTANIOUS
     Route: 058
     Dates: end: 20041028
  3. KEFLEX [Concomitant]

REACTIONS (1)
  - PSORIASIS [None]
